FAERS Safety Report 8877648 (Version 1)
Quarter: 2012Q4

REPORT INFORMATION
  Report Type: Spontaneous
  Country: US (occurrence: None)
  Receive Date: 20121031
  Receipt Date: 20121031
  Transmission Date: 20130627
  Serious: Yes (Other)
  Sender: FDA-Public Use
  Company Number: None

PATIENT
  Age: 35 Year
  Sex: Female
  Weight: 68.04 kg

DRUGS (1)
  1. MIRENA IUD [Suspect]

REACTIONS (6)
  - Muscle spasms [None]
  - Vaginal haemorrhage [None]
  - Device dislocation [None]
  - Nightmare [None]
  - Stress [None]
  - Economic problem [None]
